FAERS Safety Report 22951869 (Version 3)
Quarter: 2024Q1

REPORT INFORMATION
  Report Type: Spontaneous
  Country: US (occurrence: US)
  Receive Date: 20230918
  Receipt Date: 20240214
  Transmission Date: 20240410
  Serious: Yes (Other)
  Sender: FDA-Public Use
  Company Number: US-SPECGX-T202301847

PATIENT
  Sex: Female
  Weight: 43 kg

DRUGS (3)
  1. ACETAMINOPHEN\HYDROCODONE [Suspect]
     Active Substance: ACETAMINOPHEN\HYDROCODONE
     Indication: Bone pain
     Dosage: 5/325 MG, EVERY 4-6 HOURS AS NEEDED (SOMETIMES 1 TABLET AND SOMETIMES HALF TABLET AT A TIME)
     Route: 065
     Dates: start: 202307
  2. ACETAMINOPHEN\HYDROCODONE [Suspect]
     Active Substance: ACETAMINOPHEN\HYDROCODONE
     Indication: Pain
     Dosage: 1 DOSAGE FORM, PRN (EVERY 6 HOURS)
     Route: 048
     Dates: start: 202309
  3. ACETAMINOPHEN\HYDROCODONE [Suspect]
     Active Substance: ACETAMINOPHEN\HYDROCODONE
     Dosage: 30 MG CUT DOWN TO 20 MG (CRUSHING)
     Route: 048
     Dates: start: 202309

REACTIONS (15)
  - Surgery [Unknown]
  - Parkinson^s disease [Unknown]
  - Spinal compression fracture [Unknown]
  - Haemochromatosis [Unknown]
  - Transfusion [Unknown]
  - Osteoporosis [Unknown]
  - Red blood cell count decreased [Unknown]
  - Serum ferritin increased [Unknown]
  - Light chain analysis increased [Unknown]
  - Drug withdrawal syndrome [Unknown]
  - Abdominal pain upper [Unknown]
  - Intentional product use issue [Unknown]
  - Wrong technique in product usage process [Unknown]
  - Drug intolerance [Unknown]
  - Drug ineffective [Unknown]

NARRATIVE: CASE EVENT DATE: 20150101
